FAERS Safety Report 17545120 (Version 1)
Quarter: 2020Q1

REPORT INFORMATION
  Report Type: Spontaneous
  Country: US (occurrence: US)
  Receive Date: 20200313
  Receipt Date: 20200313
  Transmission Date: 20200409
  Serious: Yes (Other)
  Sender: FDA-Public Use
  Company Number: None

PATIENT
  Age: 75 Year
  Sex: Female
  Weight: 72 kg

DRUGS (8)
  1. REMERON [Concomitant]
     Active Substance: MIRTAZAPINE
  2. CANDESARTAN. [Concomitant]
     Active Substance: CANDESARTAN
  3. ULTIMATE FLORA PROBIOTIC [Concomitant]
     Active Substance: PROBIOTICS NOS
  4. DEXILANT [Suspect]
     Active Substance: DEXLANSOPRAZOLE
     Indication: GASTROOESOPHAGEAL REFLUX DISEASE
     Dosage: ?          QUANTITY:1 CAPSULE(S);?
     Route: 048
     Dates: start: 20200229, end: 20200301
  5. AZELASTINE HCL NASAL SPRAY [Concomitant]
     Active Substance: AZELASTINE HYDROCHLORIDE
  6. TYLENOL [Concomitant]
     Active Substance: ACETAMINOPHEN
  7. VIT D3 5000IU [Concomitant]
  8. B-COMPLEX W VITAMIN C [Concomitant]

REACTIONS (6)
  - Palpitations [None]
  - Asthenia [None]
  - Tremor [None]
  - Dizziness [None]
  - Feeling hot [None]
  - Impaired driving ability [None]

NARRATIVE: CASE EVENT DATE: 20200229
